FAERS Safety Report 7263852-6 (Version None)
Quarter: 2011Q1

REPORT INFORMATION
  Report Type: 
  Country: None (occurrence: None)
  Receive Date: 20110130
  Receipt Date: 20101207
  Transmission Date: 20110831
  Serious: No
  Sender: FDA-Public Use
  Company Number: US-ABBOTT-10P-163-0690033-00

PATIENT
  Sex: Female
  Weight: 79.904 kg

DRUGS (3)
  1. HUMIRA [Suspect]
     Indication: PSORIATIC ARTHROPATHY
     Route: 058
     Dates: start: 20060301, end: 20101109
  2. METHOTREXATE [Concomitant]
     Indication: PSORIATIC ARTHROPATHY
     Dosage: NOT REPORTED.
  3. LOPRESSOR [Concomitant]
     Indication: HYPERTENSION

REACTIONS (15)
  - ARTHRALGIA [None]
  - WOUND [None]
  - MASS [None]
  - INJECTION SITE HAEMATOMA [None]
  - SKIN DISORDER [None]
  - GAIT DISTURBANCE [None]
  - SKIN EXFOLIATION [None]
  - FUNGAL INFECTION [None]
  - ONYCHOMYCOSIS [None]
  - DECREASED IMMUNE RESPONSIVENESS [None]
  - RASH PAPULAR [None]
  - RASH PRURITIC [None]
  - RASH PUSTULAR [None]
  - RASH ERYTHEMATOUS [None]
  - DRY SKIN [None]
